FAERS Safety Report 5807576-8 (Version None)
Quarter: 2008Q3

REPORT INFORMATION
  Report Type: 
  Country: None (occurrence: None)
  Receive Date: 20080711
  Receipt Date: 20080623
  Transmission Date: 20090109
  Serious: Yes (Hospitalization, Other)
  Sender: FDA-Public Use
  Company Number: PHHY2008JP05812

PATIENT
  Sex: Female
  Weight: 37 kg

DRUGS (4)
  1. ZOMETA [Suspect]
     Indication: METASTASES TO BONE
     Dosage: 4 MG, UNK
     Route: 042
     Dates: start: 20061114, end: 20071204
  2. AREDIA [Suspect]
     Indication: METASTASES TO BONE
     Dosage: 90 MG/DAY
     Route: 042
     Dates: start: 20050702, end: 20061114
  3. NAVELBINE [Concomitant]
     Indication: BREAST CANCER
     Dosage: 30 MG, UNK
     Route: 042
     Dates: start: 20071009, end: 20080122
  4. HERCEPTIN [Concomitant]
     Indication: BREAST CANCER
     Dosage: 100 MG, UNK
     Route: 042
     Dates: start: 20030624

REACTIONS (16)
  - ABSCESS JAW [None]
  - BLOOD LACTATE DEHYDROGENASE INCREASED [None]
  - BLOOD SODIUM DECREASED [None]
  - BONE LESION [None]
  - BONE SWELLING [None]
  - C-REACTIVE PROTEIN INCREASED [None]
  - FACE OEDEMA [None]
  - HAEMATOCRIT DECREASED [None]
  - HAEMOGLOBIN DECREASED [None]
  - INCISIONAL DRAINAGE [None]
  - MALAISE [None]
  - METASTASES TO LIVER [None]
  - METASTASES TO LYMPH NODES [None]
  - OSTEONECROSIS [None]
  - PYREXIA [None]
  - WHITE BLOOD CELL COUNT INCREASED [None]
